FAERS Safety Report 7980146-1 (Version None)
Quarter: 2011Q4

REPORT INFORMATION
  Report Type: 
  Country: None (occurrence: None)
  Receive Date: 20111214
  Receipt Date: 20111204
  Transmission Date: 20120403
  Serious: Yes (Hospitalization)
  Sender: FDA-Public Use
  Company Number: JP-ELI_LILLY_AND_COMPANY-JP201112001935

PATIENT
  Age: 75 Year
  Sex: Female

DRUGS (2)
  1. FORTEO [Suspect]
     Dosage: UNK
     Route: 058
     Dates: start: 20111107, end: 20111118
  2. FORTEO [Suspect]
     Dosage: UNK
     Route: 058
     Dates: start: 20111204

REACTIONS (1)
  - INTESTINAL POLYPECTOMY [None]
